FAERS Safety Report 9296870 (Version 1)
Quarter: 2013Q2

REPORT INFORMATION
  Report Type: Spontaneous
  Country: US (occurrence: US)
  Receive Date: 20130517
  Receipt Date: 20130517
  Transmission Date: 20140414
  Serious: No
  Sender: FDA-Public Use
  Company Number: US-PFIZER INC-2013153739

PATIENT
  Sex: Female

DRUGS (2)
  1. PRISTIQ [Suspect]
     Dosage: 50 MG, UNK
     Dates: start: 200912
  2. PRISTIQ [Suspect]
     Dosage: 100 MG, UNK

REACTIONS (3)
  - Fatigue [Unknown]
  - Fatigue [Unknown]
  - Somnolence [Unknown]
